FAERS Safety Report 9422495 (Version 2)
Quarter: 2013Q3

REPORT INFORMATION
  Report Type: Spontaneous
  Country: US (occurrence: US)
  Receive Date: 20130726
  Receipt Date: 20130802
  Transmission Date: 20140515
  Serious: Yes (Other)
  Sender: FDA-Public Use
  Company Number: US-JNJFOC-20130711702

PATIENT
  Age: 65 Year
  Sex: Male

DRUGS (6)
  1. XARELTO [Suspect]
     Indication: PULMONARY EMBOLISM
     Route: 048
     Dates: start: 2013
  2. XARELTO [Suspect]
     Indication: PULMONARY EMBOLISM
     Route: 048
  3. XARELTO [Suspect]
     Indication: THROMBOSIS PROPHYLAXIS
     Route: 048
     Dates: start: 2013
  4. XARELTO [Suspect]
     Indication: THROMBOSIS PROPHYLAXIS
     Route: 048
  5. XARELTO [Suspect]
     Indication: KNEE ARTHROPLASTY
     Route: 048
  6. XARELTO [Suspect]
     Indication: KNEE ARTHROPLASTY
     Route: 048
     Dates: start: 2013

REACTIONS (2)
  - Pulmonary embolism [Unknown]
  - Pyrexia [Unknown]
